FAERS Safety Report 4814663-X (Version None)
Quarter: 2005Q4

REPORT INFORMATION
  Report Type: 
  Country: None (occurrence: None)
  Receive Date: 20051028
  Receipt Date: 20051021
  Transmission Date: 20060501
  Serious: Yes (Hospitalization)
  Sender: FDA-Public Use
  Company Number: 200513425EU

PATIENT
  Age: 49 Year
  Sex: Male

DRUGS (1)
  1. NICORETTE [Suspect]
     Indication: STRESS
     Route: 002
     Dates: end: 20050101

REACTIONS (1)
  - SYNCOPE [None]
